FAERS Safety Report 19441316 (Version 1)
Quarter: 2021Q2

REPORT INFORMATION
  Report Type: Spontaneous
  Country: US (occurrence: US)
  Receive Date: 20210617
  Receipt Date: 20210617
  Transmission Date: 20210717
  Serious: No
  Sender: FDA-Public Use
  Company Number: None

PATIENT
  Age: 32 Year
  Sex: Female
  Weight: 59.4 kg

DRUGS (2)
  1. DAILY MULTIVITAMIN [Concomitant]
     Active Substance: VITAMINS
  2. NEUTROGENA SHEER ZINC FACE MINERAL SUNSCREEN BROAD SPECTRUM SPF 50 [Suspect]
     Active Substance: ZINC OXIDE
     Indication: PROPHYLAXIS AGAINST SOLAR RADIATION
     Route: 061
     Dates: start: 20210530, end: 20210611

REACTIONS (3)
  - Skin exfoliation [None]
  - Skin discolouration [None]
  - Pruritus [None]

NARRATIVE: CASE EVENT DATE: 20210611
